FAERS Safety Report 12093888 (Version 1)
Quarter: 2016Q1

REPORT INFORMATION
  Report Type: Spontaneous
  Country: DK (occurrence: DK)
  Receive Date: 20160219
  Receipt Date: 20160219
  Transmission Date: 20160526
  Serious: Yes (Other)
  Sender: FDA-Public Use
  Company Number: DK-PFIZER INC-2016096313

PATIENT
  Age: 27 Year
  Sex: Female

DRUGS (1)
  1. MINPROSTIN [Suspect]
     Active Substance: DINOPROSTONE
     Indication: LABOUR INDUCTION
     Dosage: 2 DF TOTAL
     Route: 067
     Dates: start: 20120606

REACTIONS (7)
  - Hypoaesthesia [Not Recovered/Not Resolved]
  - Peripartum haemorrhage [Recovered/Resolved]
  - Scar [Not Recovered/Not Resolved]
  - Uterine hyperstimulation [Unknown]
  - Postoperative wound complication [Recovered/Resolved]
  - Amniocentesis abnormal [Recovered/Resolved]
  - Scar pain [Not Recovered/Not Resolved]

NARRATIVE: CASE EVENT DATE: 201206
